FAERS Safety Report 5624697-3 (Version None)
Quarter: 2008Q1

REPORT INFORMATION
  Report Type: 
  Country: None (occurrence: None)
  Receive Date: 20080213
  Receipt Date: 20080208
  Transmission Date: 20080703
  Serious: Yes (Hospitalization)
  Sender: FDA-Public Use
  Company Number: B0506437A

PATIENT
  Sex: Female
  Weight: 76 kg

DRUGS (1)
  1. TOPOTECAN [Suspect]
     Dosage: 7.62MG SEE DOSAGE TEXT
     Route: 042
     Dates: start: 20071227

REACTIONS (1)
  - PLEURAL EFFUSION [None]
